FAERS Safety Report 12045238 (Version 1)
Quarter: 2016Q1

REPORT INFORMATION
  Report Type: Spontaneous
  Country: ES (occurrence: ES)
  Receive Date: 20160208
  Receipt Date: 20160208
  Transmission Date: 20160526
  Serious: Yes (Life-Threatening)
  Sender: FDA-Public Use
  Company Number: ES-TEVA-631019ISR

PATIENT
  Age: 43 Year
  Sex: Male

DRUGS (12)
  1. LANTUS SOLOSTAR 100 UNIDADES/ML SOLUCION INYECTABLE EN PLUMA PRECARGAD [Concomitant]
     Indication: DIABETES MELLITUS
     Route: 065
     Dates: start: 20110610
  2. MIRTAZAPINA ALTER 15 MG COMPRIMIDOS RECUBIERTOS CON PELICULA EFG , 60 [Concomitant]
     Indication: PERSISTENT DEPRESSIVE DISORDER
     Route: 065
     Dates: start: 20151110
  3. DOLOCATIL 1 G COMPRIMIDOS EFG, 40 COMPRIMIDOS [Concomitant]
     Indication: ARTHROPATHY
     Route: 065
     Dates: start: 20130125
  4. ACTIQ [Suspect]
     Active Substance: FENTANYL CITRATE
     Indication: PAIN
     Dosage: 400MICROG/6H-800MG/2H
     Route: 002
     Dates: start: 20101125, end: 20150716
  5. SALBUTAMOL ALDO-UNION 100 MICROGRAMOS/DOSIS SUSPENSION PARA INHALACION [Concomitant]
     Indication: ASTHMA
     Route: 065
     Dates: start: 20110609
  6. PULMICORT TURBUHALER 400 MICROGRAMOS/INHALACION POLVO PARA INHALACION [Concomitant]
     Route: 065
  7. ALOPURINOL CINFA 300 MG COMPRIMIDOS EFG, 30 COMPRIMIDOS [Concomitant]
     Indication: HYPERTENSION
     Route: 065
     Dates: start: 20110412
  8. VENLABRAIN RETARD 75 MG COMPRIMIDOS DE LIBERACION PROLONGADA , 30 COMP [Concomitant]
     Indication: DEPRESSION
     Route: 065
     Dates: start: 20151111
  9. METHADONE [Concomitant]
     Active Substance: METHADONE HYDROCHLORIDE
     Route: 065
  10. ACTRAPID INNOLET 100 UI/ML SOLUCION INYECTABLE EN UNA PLUMA PRECARGADA [Concomitant]
     Indication: DIABETES MELLITUS
     Route: 065
     Dates: start: 20130610
  11. COLCHICINA SEID 1 MG COMPRIMIDOS, 40 COMPRIMIDOS [Concomitant]
     Indication: ARTHROPATHY
     Route: 065
     Dates: start: 20121211
  12. DEPAKINE 500 MG COMPRIMIDOS GASTRORRESISTENTES , 100 COMPRIMIDOS [Concomitant]
     Indication: DRUG ABUSE
     Route: 065
     Dates: start: 20140507

REACTIONS (6)
  - Drug abuse [Unknown]
  - Suicidal ideation [Unknown]
  - Off label use [Recovered/Resolved]
  - Dependent personality disorder [Unknown]
  - Drug dependence [Unknown]
  - Aggression [Unknown]

NARRATIVE: CASE EVENT DATE: 2015
